FAERS Safety Report 16819155 (Version 1)
Quarter: 2019Q3

REPORT INFORMATION
  Report Type: Spontaneous
  Country: US (occurrence: US)
  Receive Date: 20190917
  Receipt Date: 20190917
  Transmission Date: 20191005
  Serious: Yes (Hospitalization, Other)
  Sender: FDA-Public Use
  Company Number: US-SUNOVION-2019SUN003830

PATIENT
  Age: 89 Year
  Sex: Female

DRUGS (1)
  1. XOPENEX [Suspect]
     Active Substance: LEVALBUTEROL HYDROCHLORIDE
     Dosage: UNK UNK, TID
     Route: 055

REACTIONS (3)
  - Inappropriate schedule of product administration [Unknown]
  - Lung disorder [Unknown]
  - Pneumonia [Unknown]
